FAERS Safety Report 11909499 (Version 2)
Quarter: 2016Q2

REPORT INFORMATION
  Report Type: Spontaneous
  Country: US (occurrence: US)
  Receive Date: 20160112
  Receipt Date: 20160418
  Transmission Date: 20160815
  Serious: No
  Sender: FDA-Public Use
  Company Number: US-TEVA-618773USA

PATIENT
  Age: 59 Year
  Sex: Male

DRUGS (1)
  1. ZECUITY [Suspect]
     Active Substance: SUMATRIPTAN SUCCINATE
     Indication: PRODUCT USED FOR UNKNOWN INDICATION
     Dosage: 6.5 MG / 4 HOURS
     Route: 062
     Dates: start: 20151207, end: 20151207

REACTIONS (4)
  - Application site rash [Recovered/Resolved]
  - Application site pain [Unknown]
  - Application site erythema [Recovered/Resolved]
  - Application site paraesthesia [Unknown]

NARRATIVE: CASE EVENT DATE: 20151207
